FAERS Safety Report 24567356 (Version 4)
Quarter: 2025Q2

REPORT INFORMATION
  Report Type: Report from Study
  Country: US (occurrence: US)
  Receive Date: 20241030
  Receipt Date: 20250523
  Transmission Date: 20250717
  Serious: No
  Sender: SUNOVION
  Company Number: US-SUMITOMO PHARMA SWITZERLAND GMBH-2024SPA004471

PATIENT

DRUGS (2)
  1. ORGOVYX [Suspect]
     Active Substance: RELUGOLIX
     Indication: Prostate cancer
     Dosage: 360 MG, SINGLE
     Route: 048
  2. ORGOVYX [Suspect]
     Active Substance: RELUGOLIX
     Dosage: 120 MG, QD
     Route: 048
     Dates: start: 20241018

REACTIONS (7)
  - Eating disorder [Unknown]
  - Sleep disorder [Unknown]
  - General physical condition abnormal [Unknown]
  - Dizziness postural [Unknown]
  - Hot flush [Unknown]
  - Asthenia [Unknown]
  - Product dose omission in error [Unknown]
